FAERS Safety Report 8785423 (Version 1)
Quarter: 2012Q4

REPORT INFORMATION
  Report Type: 
  Country: US (occurrence: US)
  Receive Date: 20120914
  Receipt Date: 20120914
  Transmission Date: 20130627
  Serious: Yes (Other)
  Sender: FDA-Public Use
  Company Number: US-ASTRAZENECA-2012SE70113

PATIENT
  Age: 69 Year
  Sex: Female

DRUGS (4)
  1. NEXIUM [Suspect]
     Route: 048
  2. LISINOPRIL [Suspect]
     Route: 048
  3. HEART MEDICATION [Concomitant]
     Indication: CARDIAC DISORDER
  4. BLOOD THINNER [Concomitant]
     Indication: ANTICOAGULANT THERAPY

REACTIONS (3)
  - Atrial fibrillation [Unknown]
  - Gastrooesophageal reflux disease [Unknown]
  - Cough [Unknown]
